FAERS Safety Report 4304457-6 (Version None)
Quarter: 2004Q1

REPORT INFORMATION
  Report Type: 
  Country: None (occurrence: None)
  Receive Date: 20040225
  Receipt Date: 20040225
  Transmission Date: 20041129
  Serious: Yes (Disabling)
  Sender: FDA-Public Use
  Company Number: None

PATIENT
  Age: 59 Year
  Sex: Male
  Weight: 108.8633 kg

DRUGS (2)
  1. GENTAMICIN [Suspect]
     Indication: CATHETER RELATED INFECTION
     Dosage: 1 EVERY OTHER INTRAVENOUS
     Route: 042
     Dates: start: 20030321, end: 20030505
  2. GENTAMICIN [Suspect]
     Indication: CATHETER RELATED INFECTION
     Dosage: 1 EVERY OTHER INTRAVENOUS
     Route: 042
     Dates: start: 20030804, end: 20030822

REACTIONS (1)
  - NO ADVERSE DRUG EFFECT [None]
